FAERS Safety Report 18032813 (Version 1)
Quarter: 2020Q3

REPORT INFORMATION
  Report Type: Spontaneous
  Country: US (occurrence: US)
  Receive Date: 20200716
  Receipt Date: 20200716
  Transmission Date: 20201103
  Serious: No
  Sender: FDA-Public Use
  Company Number: US-AERIE-US-2020-001517

PATIENT

DRUGS (3)
  1. RHOPRESSA [Suspect]
     Active Substance: NETARSUDIL MESYLATE
     Indication: NORMAL TENSION GLAUCOMA
     Dosage: 2 GTT DROPS, QHS
     Route: 047
     Dates: start: 201905, end: 20200517
  2. LUMIGAN [Suspect]
     Active Substance: BIMATOPROST
     Indication: NORMAL TENSION GLAUCOMA
     Dosage: 2 GTT DROPS, QHS
     Route: 047
     Dates: start: 2000
  3. FISH OIL [Concomitant]
     Active Substance: FISH OIL
     Dosage: 1 DOSAGE FORM, QAM
     Route: 048
     Dates: start: 2005

REACTIONS (2)
  - Visual acuity reduced [Not Recovered/Not Resolved]
  - Off label use [Unknown]

NARRATIVE: CASE EVENT DATE: 202003
